FAERS Safety Report 25037634 (Version 3)
Quarter: 2025Q1

REPORT INFORMATION
  Report Type: Spontaneous
  Country: US (occurrence: US)
  Receive Date: 20250304
  Receipt Date: 20250325
  Transmission Date: 20250409
  Serious: Yes (Other)
  Sender: BAYER HEALTHCARE LLC
  Company Number: US-BAYER-2025A029798

PATIENT
  Age: 81 Year
  Sex: Female

DRUGS (1)
  1. CLARITIN [Suspect]
     Active Substance: LORATADINE
     Route: 048

REACTIONS (5)
  - Upper airway obstruction [None]
  - Dizziness [Unknown]
  - Blood pressure decreased [Recovered/Resolved]
  - Adverse drug reaction [Unknown]
  - Asthenia [None]
